FAERS Safety Report 7609340-6 (Version None)
Quarter: 2011Q3

REPORT INFORMATION
  Report Type: 
  Country: None (occurrence: None)
  Receive Date: 20110714
  Receipt Date: 20110705
  Transmission Date: 20111222
  Serious: Yes (Other)
  Sender: FDA-Public Use
  Company Number: US-CELGENEUS-163-21880-11070342

PATIENT
  Sex: Male
  Weight: 86.26 kg

DRUGS (5)
  1. WARFARIN SODIUM [Concomitant]
     Route: 065
  2. METFORMIN HCL [Concomitant]
     Route: 065
  3. REVLIMID [Suspect]
     Indication: MULTIPLE MYELOMA
     Dosage: 25 MILLIGRAM
     Route: 048
     Dates: start: 20071214
  4. NAPROXEN (ALEVE) [Concomitant]
     Route: 065
  5. DILTIAZEM [Concomitant]
     Route: 065

REACTIONS (1)
  - TYPE 2 DIABETES MELLITUS [None]
